FAERS Safety Report 9891211 (Version 1)
Quarter: 2014Q1

REPORT INFORMATION
  Report Type: Spontaneous
  Country: IT (occurrence: IT)
  Receive Date: 20140212
  Receipt Date: 20140212
  Transmission Date: 20141002
  Serious: Yes (Hospitalization)
  Sender: FDA-Public Use
  Company Number: IT-SA-2014SA014961

PATIENT
  Age: 74 Year
  Sex: Male

DRUGS (8)
  1. LASIX [Suspect]
     Indication: HYPERTENSION
     Route: 048
     Dates: start: 20130601, end: 20131207
  2. METOLAZONE [Suspect]
     Indication: HYPERTENSION
     Route: 048
     Dates: start: 20130601, end: 20131207
  3. NITROGLYCERINE [Concomitant]
  4. BISOPROLOL FUMARATE [Concomitant]
  5. ATORVASTATIN [Concomitant]
  6. INSULIN [Concomitant]
  7. TIOTROPIUM BROMIDE [Concomitant]
  8. SEROQUEL [Concomitant]

REACTIONS (2)
  - Hyponatraemia [Recovered/Resolved]
  - Hypokalaemia [Recovered/Resolved]
